FAERS Safety Report 17011837 (Version 1)
Quarter: 2019Q4

REPORT INFORMATION
  Report Type: Spontaneous
  Country: CA (occurrence: CA)
  Receive Date: 20191108
  Receipt Date: 20191108
  Transmission Date: 20200122
  Serious: Yes (Hospitalization)
  Sender: FDA-Public Use
  Company Number: CA-TAKEDA-2019TUS063444

PATIENT
  Age: 60 Year
  Sex: Male
  Weight: 113 kg

DRUGS (3)
  1. DEXILANT [Suspect]
     Active Substance: DEXLANSOPRAZOLE
     Indication: PRODUCT USED FOR UNKNOWN INDICATION
     Dosage: 60 MILLIGRAM, QD
     Route: 048
  2. ZYBAN [Suspect]
     Active Substance: BUPROPION HYDROCHLORIDE
     Indication: SMOKING CESSATION THERAPY
     Dosage: 150 MILLIGRAM, QD
     Route: 048
  3. CELEBREX [Concomitant]
     Active Substance: CELECOXIB
     Dosage: UNK
     Route: 065

REACTIONS (6)
  - Blood creatinine increased [Recovering/Resolving]
  - Hypertension [Recovering/Resolving]
  - Pyrexia [Recovering/Resolving]
  - Pain of skin [Recovering/Resolving]
  - Hepatic enzyme [Recovering/Resolving]
  - Erythema [Recovering/Resolving]
